FAERS Safety Report 11873815 (Version 1)
Quarter: 2015Q4

REPORT INFORMATION
  Report Type: Spontaneous
  Country: US (occurrence: US)
  Receive Date: 20151229
  Receipt Date: 20151229
  Transmission Date: 20160305
  Serious: Yes (Other)
  Sender: FDA-Public Use
  Company Number: US-AMGEN-USASP2015138609

PATIENT
  Age: 38 Year
  Sex: Female

DRUGS (1)
  1. ENBREL [Suspect]
     Active Substance: ETANERCEPT
     Indication: RHEUMATOID ARTHRITIS
     Dosage: 50 MG, QWK
     Route: 058
     Dates: start: 20151209

REACTIONS (6)
  - Feeling hot [Unknown]
  - Pain [Unknown]
  - Musculoskeletal pain [Unknown]
  - Injection site rash [Unknown]
  - Dysarthria [Unknown]
  - Amnesia [Unknown]

NARRATIVE: CASE EVENT DATE: 201512
